FAERS Safety Report 9393177 (Version 1)
Quarter: 2013Q3

REPORT INFORMATION
  Report Type: Report from Study
  Country: CA (occurrence: CA)
  Receive Date: 20130710
  Receipt Date: 20130710
  Transmission Date: 20140515
  Serious: Yes (Hospitalization)
  Sender: FDA-Public Use
  Company Number: CA-JNJFOC-20130704052

PATIENT
  Age: 30 Year
  Sex: Female
  Weight: 85 kg

DRUGS (3)
  1. REMICADE [Suspect]
     Indication: CROHN^S DISEASE
     Route: 042
  2. REMICADE [Suspect]
     Indication: CROHN^S DISEASE
     Dosage: LAST INFLIXIMAB INFUSION
     Route: 042
     Dates: start: 20130422
  3. SYNTHROID [Concomitant]
     Route: 048

REACTIONS (2)
  - Appendicitis [Unknown]
  - Lower respiratory tract infection [Unknown]
